FAERS Safety Report 10889008 (Version 1)
Quarter: 2015Q1

REPORT INFORMATION
  Report Type: Not Available
  Country: SE (occurrence: SE)
  Receive Date: 20150305
  Receipt Date: 20150305
  Transmission Date: 20150721
  Serious: Yes (Other)
  Sender: FDA-Public Use
  Company Number: SE-MUNDIPHARMA DS AND PHARMACOVIGILANCE-GBR-2015-0025844

PATIENT
  Age: 85 Year
  Sex: Male

DRUGS (7)
  1. NORSPAN [Suspect]
     Active Substance: BUPRENORPHINE
     Indication: PAIN
     Dosage: 5 MCG, Q1H
     Route: 062
     Dates: start: 20141208, end: 20150202
  2. METFORMIN ACTAVIS [Concomitant]
     Active Substance: METFORMIN HYDROCHLORIDE
     Dosage: 500 MG, UNK
  3. PAMOL [Concomitant]
     Active Substance: ACETAMINOPHEN
     Dosage: 500 MG, UNK
  4. LAKTULOS [Concomitant]
     Dosage: 670 MG/ML, UNK
     Route: 048
  5. TROMBYL [Concomitant]
     Active Substance: ASPIRIN
     Dosage: 75 MG, UNK
  6. CILAXORAL [Concomitant]
     Dosage: 7.5 MG/ML, UNK
  7. SELOKENZOC [Concomitant]
     Active Substance: METOPROLOL SUCCINATE
     Dosage: 25 MG, UNK

REACTIONS (1)
  - Mania [Recovered/Resolved]

NARRATIVE: CASE EVENT DATE: 201412
